FAERS Safety Report 19426605 (Version 3)
Quarter: 2021Q3

REPORT INFORMATION
  Report Type: Spontaneous
  Country: US (occurrence: US)
  Receive Date: 20210616
  Receipt Date: 20210709
  Transmission Date: 20211014
  Serious: Yes (Other)
  Sender: FDA-Public Use
  Company Number: US-PFIZER INC-2021699395

PATIENT
  Age: 69 Year
  Sex: Male

DRUGS (7)
  1. USTEKINUMAB [Suspect]
     Active Substance: USTEKINUMAB
     Indication: PALMOPLANTAR PUSTULOSIS
     Dosage: UNK
     Route: 065
  2. ETANERCEPT [Suspect]
     Active Substance: ETANERCEPT
     Indication: PALMOPLANTAR PUSTULOSIS
     Dosage: UNK
     Route: 065
  3. ADALIMUMAB [Suspect]
     Active Substance: ADALIMUMAB
     Indication: PALMOPLANTAR PUSTULOSIS
     Dosage: UNK
     Route: 065
  4. DAPSONE. [Suspect]
     Active Substance: DAPSONE
     Indication: PALMOPLANTAR PUSTULOSIS
     Dosage: UNK
     Route: 065
  5. APREMILAST [Suspect]
     Active Substance: APREMILAST
     Indication: PALMOPLANTAR PUSTULOSIS
     Dosage: UNK
     Route: 065
  6. SECUKINUMAB. [Suspect]
     Active Substance: SECUKINUMAB
     Indication: PALMOPLANTAR PUSTULOSIS
     Dosage: UNK
     Route: 065
  7. METHOTREXATE SODIUM. [Suspect]
     Active Substance: METHOTREXATE SODIUM
     Indication: PALMOPLANTAR PUSTULOSIS
     Dosage: UNK
     Route: 065

REACTIONS (4)
  - Cutaneous T-cell lymphoma recurrent [Recovering/Resolving]
  - Off label use [Unknown]
  - Superinfection [Unknown]
  - Drug ineffective for unapproved indication [Unknown]
